FAERS Safety Report 12145694 (Version 1)
Quarter: 2016Q1

REPORT INFORMATION
  Report Type: Spontaneous
  Country: US (occurrence: None)
  Receive Date: 20160303
  Receipt Date: 20160303
  Transmission Date: 20160526
  Serious: Yes (Hospitalization)
  Sender: FDA-Public Use
  Company Number: None

PATIENT
  Age: 63 Year
  Sex: Male
  Weight: 154 kg

DRUGS (2)
  1. WARFARIN [Concomitant]
     Active Substance: WARFARIN
  2. PRADAXA [Suspect]
     Active Substance: DABIGATRAN ETEXILATE MESYLATE
     Indication: ATRIAL FIBRILLATION
     Route: 048
     Dates: start: 20150301, end: 20160223

REACTIONS (7)
  - Blood glucose increased [None]
  - Haematocrit decreased [None]
  - Blood creatinine increased [None]
  - Red blood cell count decreased [None]
  - Haemoglobin decreased [None]
  - Blood urea increased [None]
  - Melaena [None]

NARRATIVE: CASE EVENT DATE: 20160223
